FAERS Safety Report 9339147 (Version 3)
Quarter: 2013Q3

REPORT INFORMATION
  Report Type: Report from Study
  Country: JP (occurrence: JP)
  Receive Date: 20130610
  Receipt Date: 20130701
  Transmission Date: 20140515
  Serious: Yes (Hospitalization, Other)
  Sender: FDA-Public Use
  Company Number: JP-TEVA-396437ISR

PATIENT
  Age: 53 Year
  Sex: Female
  Weight: 49.1 kg

DRUGS (9)
  1. EPOPROSTENOL 1.5MG 1VIAL [Suspect]
     Indication: PULMONARY ARTERIAL HYPERTENSION
     Dosage: 35NG/KG/MIN, 3.2ML/H
     Route: 041
     Dates: start: 20120705
  2. ADCIRCA [Concomitant]
     Indication: PULMONARY ARTERIAL HYPERTENSION
     Dosage: 20 MILLIGRAM DAILY;
     Route: 048
     Dates: start: 20100223
  3. PREDONINE [Concomitant]
     Indication: PULMONARY ARTERIAL HYPERTENSION
     Dosage: 5 MILLIGRAM DAILY;
     Route: 048
     Dates: start: 20060405
  4. ALFAROL [Concomitant]
     Dosage: .5 MICROGRAM DAILY;
     Route: 048
     Dates: start: 20090609
  5. LASIX [Concomitant]
     Dosage: 40 MILLIGRAM DAILY;
     Route: 048
     Dates: start: 20060210
  6. TAKEPRON [Concomitant]
     Dosage: 15 MILLIGRAM DAILY;
     Route: 048
     Dates: start: 20060210
  7. WARFARIN [Concomitant]
     Dosage: 1 MILLIGRAM DAILY;
     Route: 048
     Dates: start: 20060210
  8. BONOTEO [Concomitant]
     Route: 048
     Dates: start: 20120207
  9. MAINTATE [Concomitant]
     Dosage: 2.5 MILLIGRAM DAILY;
     Route: 048
     Dates: start: 20100910

REACTIONS (3)
  - Pulmonary arterial pressure increased [Recovering/Resolving]
  - Device leakage [Recovered/Resolved]
  - Superior vena cava syndrome [Recovering/Resolving]
